FAERS Safety Report 7312141-X (Version None)
Quarter: 2011Q1

REPORT INFORMATION
  Report Type: 
  Country: None (occurrence: None)
  Receive Date: 20110224
  Receipt Date: 20110223
  Transmission Date: 20110831
  Serious: Yes (Other)
  Sender: FDA-Public Use
  Company Number: A0914997A

PATIENT
  Age: 18 Year
  Sex: Female

DRUGS (1)
  1. ALLI [Suspect]
     Indication: WEIGHT LOSS DIET
     Route: 048
     Dates: start: 20110221, end: 20110222

REACTIONS (2)
  - RECTAL HAEMORRHAGE [None]
  - RECTAL DISCHARGE [None]
